FAERS Safety Report 25758396 (Version 2)
Quarter: 2025Q3

REPORT INFORMATION
  Report Type: Report from Study
  Country: CA (occurrence: CA)
  Receive Date: 20250904
  Receipt Date: 20250923
  Transmission Date: 20251020
  Serious: Yes (Other)
  Sender: Alvotech
  Company Number: CA-JAMP PHARMA CORPORATION-2023-JAM-CA-00049

PATIENT
  Age: 44 Year
  Sex: Female

DRUGS (1)
  1. SIMLANDI [Suspect]
     Active Substance: ADALIMUMAB-RYVK
     Indication: Colitis ulcerative
     Dosage: 40 MG EVERY 2 WEEKS
     Route: 058
     Dates: start: 20230112

REACTIONS (9)
  - Haematochezia [Unknown]
  - Colitis ulcerative [Unknown]
  - Abdominal distension [Unknown]
  - Injection site pain [Recovered/Resolved]
  - Diarrhoea [Unknown]
  - Abdominal pain [Unknown]
  - Circumstance or information capable of leading to medication error [Unknown]
  - Product dispensing issue [Recovered/Resolved]
  - Off label use [Unknown]

NARRATIVE: CASE EVENT DATE: 20230112
